FAERS Safety Report 7562397-3 (Version None)
Quarter: 2011Q2

REPORT INFORMATION
  Report Type: 
  Country: None (occurrence: None)
  Receive Date: 20110614
  Receipt Date: 20110601
  Transmission Date: 20111010
  Serious: Yes (Life-Threatening, Hospitalization, Other)
  Sender: FDA-Public Use
  Company Number: 2011MA006661

PATIENT
  Age: 46 Year
  Sex: Male

DRUGS (4)
  1. OXYCODONE HCL [Suspect]
     Indication: BACK PAIN
     Dosage: 350 MG;1X;PO
     Route: 048
  2. DIAZEPAM [Suspect]
     Dosage: 2
  3. CARISOPRODOL [Suspect]
     Dosage: 850 MG;1X;PO
     Route: 048
  4. OXYCONTIN [Suspect]
     Dosage: 400 MG;1X;PO
     Route: 048

REACTIONS (18)
  - CEREBELLAR INFARCTION [None]
  - LEUKOENCEPHALOPATHY [None]
  - DELIRIUM [None]
  - DISORIENTATION [None]
  - MIOSIS [None]
  - OVERDOSE [None]
  - UNRESPONSIVE TO STIMULI [None]
  - SLUGGISHNESS [None]
  - INTRACRANIAL PRESSURE INCREASED [None]
  - AGITATION [None]
  - GRAND MAL CONVULSION [None]
  - CORNEAL REFLEX DECREASED [None]
  - BRAIN OEDEMA [None]
  - RESPIRATORY DEPRESSION [None]
  - INFLAMMATION [None]
  - PUPILLARY REFLEX IMPAIRED [None]
  - HYDROCEPHALUS [None]
  - TOXICITY TO VARIOUS AGENTS [None]
